FAERS Safety Report 7690823-8 (Version None)
Quarter: 2011Q3

REPORT INFORMATION
  Report Type: 
  Country: None (occurrence: None)
  Receive Date: 20110818
  Receipt Date: 20110815
  Transmission Date: 20111222
  Serious: Yes (Death, Other)
  Sender: FDA-Public Use
  Company Number: GB-B.I. PHARMACEUTICALS,INC./RIDGEFIELD-2011-UK-00858UK

PATIENT
  Sex: Female

DRUGS (12)
  1. ALBUTEROL [Concomitant]
     Dosage: 2 PUFFS PRN
  2. CLOPIDOGREL [Concomitant]
     Dosage: 1 ANZ
  3. SPIRIVA RESPIMAT [Suspect]
     Dosage: 2 PUF
     Dates: start: 20110613
  4. PREDNISOLONE [Concomitant]
  5. SERETIDE EVO [Concomitant]
     Dosage: 4 PUF
  6. SIMVASTATIN [Concomitant]
     Dosage: 1 ANZ
  7. OXYGEN [Concomitant]
     Indication: DYSPNOEA
  8. ASPIRIN [Concomitant]
     Dosage: 1 ANZ
  9. FLUZINAMIDE [Concomitant]
  10. RANITIDINE [Concomitant]
     Dosage: 2 ANZ
  11. ISMN [Concomitant]
     Dosage: 2 ANZ
  12. FUROSEMIDE [Concomitant]
     Dosage: 1 ANZ

REACTIONS (2)
  - DEATH [None]
  - LOWER RESPIRATORY TRACT INFECTION [None]
